FAERS Safety Report 8669292 (Version 4)
Quarter: 2014Q3

REPORT INFORMATION
  Report Type: Spontaneous
  Country: US (occurrence: US)
  Receive Date: 20120717
  Receipt Date: 20140815
  Transmission Date: 20150326
  Serious: Yes (Hospitalization, Other)
  Sender: FDA-Public Use
  Company Number: US-009507513-2011SP042784

PATIENT
  Sex: Female
  Weight: 96.37 kg

DRUGS (5)
  1. NUVARING [Suspect]
     Active Substance: ETHINYL ESTRADIOL\ETONOGESTREL
     Indication: CONTRACEPTION
     Dosage: 1 DF, QM
     Route: 067
     Dates: start: 20090811, end: 20090903
  2. NUVARING [Suspect]
     Active Substance: ETHINYL ESTRADIOL\ETONOGESTREL
     Indication: DYSMENORRHOEA
  3. NUVARING [Suspect]
     Active Substance: ETHINYL ESTRADIOL\ETONOGESTREL
     Indication: MENSTRUATION IRREGULAR
  4. NUVARING [Suspect]
     Active Substance: ETHINYL ESTRADIOL\ETONOGESTREL
     Indication: MENORRHAGIA
  5. HORMONAL CONTRACEPTIVES (UNSPECIFIED) [Concomitant]
     Active Substance: UNSPECIFIED INGREDIENT
     Indication: MENSTRUATION IRREGULAR
     Dosage: UNK
     Dates: start: 20090903, end: 200909

REACTIONS (19)
  - Pulmonary embolism [Unknown]
  - Chest pain [Unknown]
  - Pulmonary embolism [Unknown]
  - Diastolic dysfunction [Unknown]
  - Blood count abnormal [Unknown]
  - Pelvic pain [Recovered/Resolved]
  - Premature rupture of membranes [Recovered/Resolved]
  - Abortion threatened [Unknown]
  - Unintended pregnancy [Recovered/Resolved]
  - Deep vein thrombosis [Unknown]
  - Adjustment disorder [Unknown]
  - Sinusitis [Unknown]
  - Hypercoagulation [Unknown]
  - Polycystic ovaries [Unknown]
  - Groin pain [Unknown]
  - Mitral valve incompetence [Unknown]
  - Pyrexia [Unknown]
  - Right ventricular systolic pressure increased [Unknown]
  - Dyspnoea [Unknown]

NARRATIVE: CASE EVENT DATE: 200909
